FAERS Safety Report 17605892 (Version 1)
Quarter: 2020Q1

REPORT INFORMATION
  Report Type: Spontaneous
  Country: CN (occurrence: CN)
  Receive Date: 20200331
  Receipt Date: 20200331
  Transmission Date: 20200409
  Serious: Yes (Other)
  Sender: FDA-Public Use
  Company Number: CN-ROCHE-2572203

PATIENT
  Age: 69 Year
  Sex: Female

DRUGS (6)
  1. PEMETREXED. [Suspect]
     Active Substance: PEMETREXED
     Indication: LUNG ADENOCARCINOMA
     Route: 065
     Dates: start: 20181127
  2. CISPLATIN. [Suspect]
     Active Substance: CISPLATIN
     Indication: METASTASES TO PLEURA
  3. AVASTIN [Suspect]
     Active Substance: BEVACIZUMAB
     Indication: LUNG ADENOCARCINOMA
     Route: 065
     Dates: start: 20181127
  4. AVASTIN [Suspect]
     Active Substance: BEVACIZUMAB
     Indication: METASTASES TO PLEURA
  5. PEMETREXED. [Suspect]
     Active Substance: PEMETREXED
     Indication: METASTASES TO PLEURA
  6. CISPLATIN. [Suspect]
     Active Substance: CISPLATIN
     Indication: LUNG ADENOCARCINOMA
     Route: 065
     Dates: start: 20181127

REACTIONS (2)
  - Hypertension [Unknown]
  - Bone marrow failure [Unknown]
